FAERS Safety Report 22091643 (Version 1)
Quarter: 2023Q1

REPORT INFORMATION
  Report Type: Spontaneous
  Country: US (occurrence: US)
  Receive Date: 20230314
  Receipt Date: 20230314
  Transmission Date: 20230417
  Serious: Yes (Hospitalization, Other)
  Sender: FDA-Public Use
  Company Number: US-BAXTER-2023BAX014764

PATIENT
  Age: 60 Year
  Sex: Female

DRUGS (1)
  1. EXTRANEAL [Suspect]
     Active Substance: CALCIUM CHLORIDE\ICODEXTRIN\MAGNESIUM CHLORIDE\SODIUM CHLORIDE\SODIUM LACTATE
     Route: 033

REACTIONS (12)
  - Urine abnormality [Recovered/Resolved]
  - Chemical peritonitis [Recovered/Resolved]
  - Abdominal pain [Recovered/Resolved]
  - Chemical peritonitis [Recovered/Resolved]
  - Abdominal pain [Recovered/Resolved]
  - Chemical peritonitis [Recovered/Resolved]
  - Abdominal pain [Recovered/Resolved]
  - Urine abnormality [Recovered/Resolved]
  - Urine abnormality [Recovered/Resolved]
  - Inflammation [Recovered/Resolved]
  - Inflammation [Recovered/Resolved]
  - Inflammation [Recovered/Resolved]

NARRATIVE: CASE EVENT DATE: 20220720
